FAERS Safety Report 4866177-9 (Version None)
Quarter: 2005Q4

REPORT INFORMATION
  Report Type: 
  Country: None (occurrence: None)
  Receive Date: 20051227
  Receipt Date: 20050722
  Transmission Date: 20060501
  Serious: Yes (Hospitalization)
  Sender: FDA-Public Use
  Company Number: KR-BRISTOL-MYERS SQUIBB COMPANY-13056403

PATIENT
  Age: 34 Year
  Sex: Female

DRUGS (5)
  1. ABILIFY [Suspect]
     Indication: SCHIZOPHRENIA
     Dosage: DOSAGE: 15MG 03-JUN-2005, INCREASED TO 30MG 05-JUN-2005, DECREASED BACK TO 15MG 04-JUL-2005
     Route: 048
     Dates: start: 20050602, end: 20050709
  2. DIAZEPAM [Suspect]
     Indication: SEDATIVE THERAPY
     Route: 048
     Dates: start: 20050602, end: 20050708
  3. PROCYCLIDINE HYDROCHLORIDE 2MG TAB [Suspect]
     Indication: SCHIZOPHRENIA
     Route: 048
     Dates: start: 20050602, end: 20050721
  4. FLUNITRAZEPAM [Suspect]
     Indication: SCHIZOPHRENIA
     Route: 048
     Dates: start: 20050602, end: 20050708
  5. CHLORPROTHIXENE [Suspect]
     Indication: SCHIZOPHRENIA
     Route: 048
     Dates: start: 20050602, end: 20050705

REACTIONS (3)
  - ALANINE AMINOTRANSFERASE INCREASED [None]
  - ASPARTATE AMINOTRANSFERASE INCREASED [None]
  - ERYTHEMA MULTIFORME [None]
